FAERS Safety Report 15565785 (Version 1)
Quarter: 2018Q4

REPORT INFORMATION
  Report Type: Spontaneous
  Country: US (occurrence: US)
  Receive Date: 20181030
  Receipt Date: 20181030
  Transmission Date: 20190205
  Serious: Yes (Death, Life-Threatening, Other)
  Sender: FDA-Public Use
  Company Number: US-HIKMA PHARMACEUTICALS USA INC.-US-H14001-18-08071

PATIENT
  Age: 70 Year
  Sex: Male

DRUGS (2)
  1. ROCURONIUM [Suspect]
     Active Substance: ROCURONIUM BROMIDE
     Indication: EXPLORATIVE LAPAROTOMY
     Route: 065
  2. ETOMIDATE. [Suspect]
     Active Substance: ETOMIDATE
     Indication: EXPLORATIVE LAPAROTOMY
     Route: 065

REACTIONS (2)
  - Carcinoid crisis [Fatal]
  - Pulseless electrical activity [Fatal]
